FAERS Safety Report 14110771 (Version 3)
Quarter: 2017Q4

REPORT INFORMATION
  Report Type: Spontaneous
  Country: US (occurrence: US)
  Receive Date: 20171020
  Receipt Date: 20171108
  Transmission Date: 20180321
  Serious: Yes (Congenital Anomaly, Other)
  Sender: FDA-Public Use
  Company Number: US-ETHYPHARM USA CORP.-2017-EY-BP-US-00054

PATIENT

DRUGS (2)
  1. BUPRENORPHINE. [Suspect]
     Active Substance: BUPRENORPHINE
     Indication: DRUG WITHDRAWAL SYNDROME NEONATAL
     Dosage: 1 DF, TID
     Route: 060
  2. BUPRENORPHINE. [Suspect]
     Active Substance: BUPRENORPHINE
     Indication: PRODUCT USED FOR UNKNOWN INDICATION
     Route: 064

REACTIONS (4)
  - Drug withdrawal syndrome neonatal [Unknown]
  - Foetal exposure during pregnancy [Unknown]
  - Drug administered to patient of inappropriate age [Unknown]
  - Pierre Robin syndrome [Unknown]
